FAERS Safety Report 11168059 (Version 1)
Quarter: 2015Q2

REPORT INFORMATION
  Report Type: Spontaneous
  Country: US (occurrence: None)
  Receive Date: 20150604
  Receipt Date: 20150604
  Transmission Date: 20150821
  Serious: Yes (Hospitalization)
  Sender: FDA-Public Use
  Company Number: None

PATIENT
  Age: 41 Year
  Sex: Female
  Weight: 89.36 kg

DRUGS (8)
  1. NAPROXEN. [Concomitant]
     Active Substance: NAPROXEN
  2. ELAN LILTY DROXYZINE [Concomitant]
  3. KLONOPIN [Concomitant]
     Active Substance: CLONAZEPAM
  4. HYDROCORTISONE CREAM [Concomitant]
     Active Substance: HYDROCORTISONE
  5. VICONDINE [Concomitant]
  6. LISINOPRIL. [Concomitant]
     Active Substance: LISINOPRIL
  7. LATUDA [Suspect]
     Active Substance: LURASIDONE HYDROCHLORIDE
     Indication: BIPOLAR DISORDER
     Route: 048
     Dates: end: 20150428
  8. CRESTOR [Concomitant]
     Active Substance: ROSUVASTATIN CALCIUM

REACTIONS (4)
  - Dysphemia [None]
  - Hallucination, visual [None]
  - Vertigo [None]
  - Gait disturbance [None]

NARRATIVE: CASE EVENT DATE: 20150519
